FAERS Safety Report 12836258 (Version 1)
Quarter: 2016Q4

REPORT INFORMATION
  Report Type: Spontaneous
  Country: US (occurrence: US)
  Receive Date: 20161011
  Receipt Date: 20161011
  Transmission Date: 20170207
  Serious: Yes (Disabling)
  Sender: FDA-Public Use
  Company Number: None

PATIENT
  Age: 62 Year
  Sex: Female
  Weight: 85.28 kg

DRUGS (31)
  1. FORTEO [Concomitant]
     Active Substance: TERIPARATIDE
  2. GABAPENTIN. [Concomitant]
     Active Substance: GABAPENTIN
  3. VERAMYST [Concomitant]
     Active Substance: FLUTICASONE FUROATE
  4. LEVOFLOXACIN. [Suspect]
     Active Substance: LEVOFLOXACIN
     Indication: BRONCHITIS
     Route: 048
     Dates: start: 20160819
  5. MONTELUKAST [Concomitant]
     Active Substance: MONTELUKAST SODIUM
  6. TACROLIMUS. [Concomitant]
     Active Substance: TACROLIMUS
  7. OLLY WOMEN^S SUPPER FOODS MULTIVITAMINS [Concomitant]
  8. TRAMADOL. [Concomitant]
     Active Substance: TRAMADOL
  9. ZYRTEC [Concomitant]
     Active Substance: CETIRIZINE HYDROCHLORIDE
  10. HIZENTRA [Concomitant]
     Active Substance: HUMAN IMMUNOGLOBULIN G
  11. LEVOFLOXACIN. [Suspect]
     Active Substance: LEVOFLOXACIN
     Indication: IMMUNE SYSTEM DISORDER
     Route: 048
     Dates: start: 20160819
  12. MAXALT [Concomitant]
     Active Substance: RIZATRIPTAN BENZOATE
  13. ESTRING [Concomitant]
     Active Substance: ESTRADIOL
  14. HYDROCORTISONE. [Concomitant]
     Active Substance: HYDROCORTISONE
  15. COLESTIPOL HCL [Concomitant]
     Active Substance: COLESTIPOL HYDROCHLORIDE
  16. VOLTAREN [Concomitant]
     Active Substance: DICLOFENAC SODIUM
  17. NYSTATIN. [Concomitant]
     Active Substance: NYSTATIN
  18. SPIRIVA [Concomitant]
     Active Substance: TIOTROPIUM BROMIDE MONOHYDRATE
  19. ATROVENT [Concomitant]
     Active Substance: IPRATROPIUM BROMIDE
  20. LEVOFLOXACIN. [Suspect]
     Active Substance: LEVOFLOXACIN
     Indication: ASTHMA
     Route: 048
     Dates: start: 20160819
  21. AMLODIPINE [Concomitant]
     Active Substance: AMLODIPINE BESYLATE
  22. TOPIRAMATE. [Concomitant]
     Active Substance: TOPIRAMATE
  23. VITAMIN D [Concomitant]
     Active Substance: CHOLECALCIFEROL
  24. LIDOCAINE. [Concomitant]
     Active Substance: LIDOCAINE
  25. PATANASE [Concomitant]
     Active Substance: OLOPATADINE HYDROCHLORIDE
  26. XOPENEX [Concomitant]
     Active Substance: LEVALBUTEROL HYDROCHLORIDE
  27. METHOCARBAMOL. [Concomitant]
     Active Substance: METHOCARBAMOL
  28. LOSARTAN. [Concomitant]
     Active Substance: LOSARTAN
  29. ADVAIR HFA [Concomitant]
     Active Substance: FLUTICASONE PROPIONATE\SALMETEROL XINAFOATE
  30. ATROVENT [Concomitant]
     Active Substance: IPRATROPIUM BROMIDE
  31. CLOTRIMAZOLE. [Concomitant]
     Active Substance: CLOTRIMAZOLE

REACTIONS (1)
  - Tendonitis [None]

NARRATIVE: CASE EVENT DATE: 20160923
